FAERS Safety Report 24854761 (Version 1)
Quarter: 2025Q1

REPORT INFORMATION
  Report Type: Spontaneous
  Country: CH (occurrence: CH)
  Receive Date: 20250117
  Receipt Date: 20250117
  Transmission Date: 20250408
  Serious: Yes (Death, Other)
  Sender: SANOFI AVENTIS
  Company Number: None

PATIENT
  Age: 50 Year
  Sex: Female
  Weight: 109 kg

DRUGS (32)
  1. ENOXAPARIN SODIUM [Suspect]
     Active Substance: ENOXAPARIN SODIUM
     Indication: Product used for unknown indication
     Dosage: 40 MG, QD (40 MG N/A DOSE EVERY 24 HOUR)
     Route: 058
     Dates: start: 20241029, end: 20241031
  2. ENOXAPARIN SODIUM [Suspect]
     Active Substance: ENOXAPARIN SODIUM
     Dosage: 40 MG, QD (40 MG N/A DOSE EVERY 12 HOUR)
     Route: 058
     Dates: start: 20241107
  3. INVANZ [Suspect]
     Active Substance: ERTAPENEM SODIUM
     Indication: Product used for unknown indication
     Dosage: 0.5 G, QD
     Route: 040
     Dates: start: 20241102
  4. HEPARIN [Concomitant]
     Active Substance: HEPARIN SODIUM
     Dates: start: 20241205, end: 20241213
  5. ASPIRIN [Concomitant]
     Active Substance: ASPIRIN
     Dosage: 100 MG, QD
     Route: 048
     Dates: end: 20241127
  6. VALDOXAN [Concomitant]
     Active Substance: AGOMELATINE
     Dosage: 25 MG, QD
     Route: 048
  7. CREON [Concomitant]
     Active Substance: PANCRELIPASE AMYLASE\PANCRELIPASE LIPASE\PANCRELIPASE PROTEASE
     Dosage: 3 DF, Q8H
     Route: 048
  8. ATORVASTATIN MEPHA TEVA [Concomitant]
     Dosage: 20 MG, QD
     Route: 048
  9. GLYCOL SALICYLATE [Concomitant]
     Active Substance: GLYCOL SALICYLATE
     Route: 061
  10. CALCIUM CARBONATE\CHOLECALCIFEROL [Concomitant]
     Active Substance: CALCIUM CARBONATE\CHOLECALCIFEROL
     Dosage: 2 DF, Q8H
     Route: 048
  11. DESMOPRESSIN ACETATE [Concomitant]
     Active Substance: DESMOPRESSIN ACETATE
     Dosage: 60 UG, Q12H
     Route: 060
  12. Lyman [Concomitant]
     Dosage: UNK, Q12H
     Route: 061
  13. HYDROCORTISONE [Concomitant]
     Active Substance: HYDROCORTISONE
     Dosage: 20 MG, QD
     Route: 048
  14. HYDROCORTISONE [Concomitant]
     Active Substance: HYDROCORTISONE
     Dosage: 5 MG, QD
     Route: 048
  15. HYDROCORTISONE [Concomitant]
     Active Substance: HYDROCORTISONE
     Dosage: 10 MG, QD
     Route: 048
  16. LAMICTAL [Concomitant]
     Active Substance: LAMOTRIGINE
     Dosage: 50 MG, QD
     Route: 048
  17. LAMICTAL [Concomitant]
     Active Substance: LAMOTRIGINE
     Dosage: 100 MG, Q12H
     Route: 048
  18. LEVOTHYROXINE [Concomitant]
     Active Substance: LEVOTHYROXINE
     Dosage: 150 UG, Q12H
     Route: 048
     Dates: start: 20241212
  19. LEVOTHYROXINE [Concomitant]
     Active Substance: LEVOTHYROXINE
     Dosage: 125 UG, Q12H
     Route: 048
     Dates: start: 20241128, end: 20241211
  20. METAMIZOLE [Concomitant]
     Active Substance: METAMIZOLE
     Route: 048
  21. MIRABEGRON [Concomitant]
     Active Substance: MIRABEGRON
     Dosage: 25 MG, QD
     Route: 048
  22. MOVICOL [Concomitant]
     Active Substance: POLYETHYLENE GLYCOL 3350\POTASSIUM CHLORIDE\SODIUM BICARBONATE\SODIUM CHLORIDE
     Route: 048
  23. NEURONTIN [Concomitant]
     Active Substance: GABAPENTIN
     Dosage: 300 MG, QD
     Route: 048
  24. SODIUM BICARBONATE [Concomitant]
     Active Substance: SODIUM BICARBONATE
     Dosage: 1000 MG, Q8H
     Route: 048
     Dates: start: 20241114, end: 20241120
  25. PANTOPRAZOLE SODIUM [Concomitant]
     Active Substance: PANTOPRAZOLE SODIUM
     Dosage: 40 MG, QD
     Route: 048
  26. ROCALTROL [Concomitant]
     Active Substance: CALCITRIOL
     Dosage: 0.5 UG, QD
  27. SPASMO URGENIN TC [Concomitant]
     Dosage: 20 MG, QD
     Route: 048
  28. BALDRIAN HOPFEN [Concomitant]
     Route: 048
  29. Paspertin [Concomitant]
     Route: 048
  30. MIDAZOLAM [Concomitant]
     Active Substance: MIDAZOLAM
     Route: 045
  31. SODIUM PICOSULFATE [Concomitant]
     Active Substance: SODIUM PICOSULFATE
     Route: 048
  32. ALBUTEROL [Concomitant]
     Active Substance: ALBUTEROL
     Route: 055

REACTIONS (2)
  - Thrombocytopenia [Fatal]
  - Haemorrhage [Fatal]

NARRATIVE: CASE EVENT DATE: 20241101
